FAERS Safety Report 15775575 (Version 1)
Quarter: 2018Q4

REPORT INFORMATION
  Report Type: Spontaneous
  Country: None (occurrence: US)
  Receive Date: 20181231
  Receipt Date: 20181231
  Transmission Date: 20190205
  Serious: Yes (Hospitalization)
  Sender: FDA-Public Use
  Company Number: US-ORPHAN EUROPE-2060699

PATIENT
  Age: 53 Year
  Sex: Female

DRUGS (1)
  1. CYSTADANE [Suspect]
     Active Substance: BETAINE
     Indication: HOMOCYSTINURIA
     Route: 048
     Dates: start: 20180701

REACTIONS (5)
  - Foot fracture [None]
  - Blood iron decreased [None]
  - Chest discomfort [None]
  - Dyspnoea [Unknown]
  - Fall [None]

NARRATIVE: CASE EVENT DATE: 20181206
